FAERS Safety Report 6095058-0 (Version None)
Quarter: 2009Q1

REPORT INFORMATION
  Report Type: 
  Country: None (occurrence: None)
  Receive Date: 20090227
  Receipt Date: 20080109
  Transmission Date: 20090719
  Serious: No
  Sender: FDA-Public Use
  Company Number: A0702177A

PATIENT
  Sex: Female

DRUGS (2)
  1. LAMICTAL [Suspect]
     Indication: DRUG USE FOR UNKNOWN INDICATION
     Dosage: 12.5MG SEE DOSAGE TEXT
     Route: 048
  2. SEROQUEL [Concomitant]
     Dosage: 50MG TWICE PER DAY
     Route: 048

REACTIONS (1)
  - ANXIETY [None]
